FAERS Safety Report 6571731-2 (Version None)
Quarter: 2010Q1

REPORT INFORMATION
  Report Type: 
  Country: None (occurrence: None)
  Receive Date: 20100205
  Receipt Date: 20100127
  Transmission Date: 20100710
  Serious: Yes (Other)
  Sender: FDA-Public Use
  Company Number: JP-PFIZER INC-2010012879

PATIENT
  Age: 71 Year
  Sex: Female

DRUGS (3)
  1. SUNITINIB MALATE [Suspect]
     Indication: METASTATIC RENAL CELL CARCINOMA
     Dosage: 50 MG, 1X/DAY
     Route: 048
     Dates: start: 20090821
  2. HEPARIN SODIUM [Suspect]
     Dosage: UNK
     Dates: start: 20090925, end: 20091001
  3. WARFARIN SODIUM [Suspect]
     Dosage: 1.5 MG, UNK
     Route: 048
     Dates: start: 20090925

REACTIONS (1)
  - PULMONARY ARTERY THROMBOSIS [None]
